FAERS Safety Report 17033967 (Version 1)
Quarter: 2019Q4

REPORT INFORMATION
  Report Type: Report from Study
  Country: US (occurrence: US)
  Receive Date: 20191114
  Receipt Date: 20191114
  Transmission Date: 20200122
  Serious: Yes (Hospitalization, Other)
  Sender: FDA-Public Use
  Company Number: US-ACTELION-A-US2018-168149

PATIENT
  Sex: Male

DRUGS (22)
  1. CYCLOBENZAPRINE. [Concomitant]
     Active Substance: CYCLOBENZAPRINE
  2. HYDROCODONE BITARTRATE. [Concomitant]
     Active Substance: HYDROCODONE BITARTRATE
  3. TAMSULOSIN [Concomitant]
     Active Substance: TAMSULOSIN
  4. COUMADIN [Concomitant]
     Active Substance: WARFARIN SODIUM
  5. FLONASE [Concomitant]
     Active Substance: FLUTICASONE PROPIONATE
  6. METOPROLOL. [Concomitant]
     Active Substance: METOPROLOL
  7. TRACLEER [Suspect]
     Active Substance: BOSENTAN
     Indication: PULMONARY ARTERIAL HYPERTENSION
     Dosage: 125 MG, BID
     Route: 048
  8. CARDIZEM [Concomitant]
     Active Substance: DILTIAZEM HYDROCHLORIDE
  9. ACETAMINOPHEN. [Concomitant]
     Active Substance: ACETAMINOPHEN
  10. POTASSIUM CHLORIDE. [Concomitant]
     Active Substance: POTASSIUM CHLORIDE
  11. FUROSEMIDE. [Concomitant]
     Active Substance: FUROSEMIDE
  12. LYRICA [Concomitant]
     Active Substance: PREGABALIN
  13. PENICILLIN [Concomitant]
     Active Substance: PENICILLIN
  14. AMOXICILLIN. [Concomitant]
     Active Substance: AMOXICILLIN
  15. VENLAFAXINE [Concomitant]
     Active Substance: VENLAFAXINE HYDROCHLORIDE
  16. ATORVASTATIN ARROW [Concomitant]
     Active Substance: ATORVASTATIN CALCIUM
  17. MONTELUKAST [Concomitant]
     Active Substance: MONTELUKAST SODIUM
  18. HYDROCODONE [Concomitant]
     Active Substance: HYDROCODONE
  19. LISINOPRIL. [Concomitant]
     Active Substance: LISINOPRIL
  20. ATORVASTATIN [Concomitant]
     Active Substance: ATORVASTATIN
  21. GABAPENTIN. [Concomitant]
     Active Substance: GABAPENTIN
  22. CEPHALEXIN. [Concomitant]
     Active Substance: CEPHALEXIN

REACTIONS (9)
  - Cardiac ablation [Unknown]
  - Weight increased [Unknown]
  - Pneumonia [Recovered/Resolved]
  - Atrial fibrillation [Unknown]
  - Dyspnoea [Unknown]
  - Cardiac flutter [Unknown]
  - Cardiac failure [Unknown]
  - Fluid retention [Unknown]
  - Red blood cell count decreased [Unknown]
